FAERS Safety Report 25624310 (Version 1)
Quarter: 2025Q3

REPORT INFORMATION
  Report Type: Spontaneous
  Country: GB (occurrence: GB)
  Receive Date: 20250730
  Receipt Date: 20250730
  Transmission Date: 20251020
  Serious: Yes (Other)
  Sender: PFIZER
  Company Number: None

PATIENT
  Age: 66 Year
  Sex: Female
  Weight: 80 kg

DRUGS (3)
  1. KETAMINE HYDROCHLORIDE [Suspect]
     Active Substance: KETAMINE HYDROCHLORIDE
     Indication: Closed fracture manipulation
     Route: 042
  2. KETAMINE HYDROCHLORIDE [Suspect]
     Active Substance: KETAMINE HYDROCHLORIDE
     Indication: Skin injury
  3. MIDAZOLAM [Concomitant]
     Active Substance: MIDAZOLAM

REACTIONS (4)
  - Hypertension [Recovered/Resolved]
  - Procedural hypertension [Recovered/Resolved]
  - Exophthalmos [Recovered/Resolved]
  - Screaming [Recovered/Resolved]
